FAERS Safety Report 8614992-8 (Version None)
Quarter: 2012Q3

REPORT INFORMATION
  Report Type: 
  Country: None (occurrence: None)
  Receive Date: 20120823
  Receipt Date: 20120821
  Transmission Date: 20120928
  Serious: Yes (Death, Hospitalization, Other)
  Sender: FDA-Public Use
  Company Number: IL-PFIZER INC-2012151782

PATIENT
  Age: 71 Year
  Sex: Female

DRUGS (10)
  1. CRESTOR [Concomitant]
  2. OMEPRAZOLE [Concomitant]
  3. DEXAMETHASONE [Concomitant]
  4. NORMALOL [Concomitant]
  5. COZAAR [Concomitant]
  6. PRAMIN [Concomitant]
  7. PARAFFIN, LIQUID [Concomitant]
  8. XALKORI [Suspect]
     Indication: NON-SMALL CELL LUNG CANCER
     Dosage: 250 MG, 2X/DAY
     Route: 048
     Dates: end: 20120615
  9. OXYCODONE HCL [Concomitant]
  10. DURAGESIC-100 [Concomitant]

REACTIONS (4)
  - DYSPNOEA [None]
  - DEATH [None]
  - PNEUMONITIS [None]
  - RESPIRATORY DISORDER [None]
